FAERS Safety Report 5081898-3 (Version None)
Quarter: 2006Q3

REPORT INFORMATION
  Report Type: 
  Country: None (occurrence: None)
  Receive Date: 20060816
  Receipt Date: 20060810
  Transmission Date: 20061208
  Serious: Yes (Hospitalization)
  Sender: FDA-Public Use
  Company Number: US-MERCK-0608USA02580

PATIENT
  Age: 44 Year
  Sex: Male

DRUGS (2)
  1. ZETIA [Suspect]
     Indication: BLOOD CHOLESTEROL INCREASED
     Route: 048
     Dates: start: 20060524, end: 20060801
  2. LISINOPRIL [Concomitant]
     Route: 065

REACTIONS (5)
  - BACK PAIN [None]
  - BLOOD CREATININE INCREASED [None]
  - HEADACHE [None]
  - NAUSEA [None]
  - RENAL DISORDER [None]
